FAERS Safety Report 25776372 (Version 1)
Quarter: 2025Q3

REPORT INFORMATION
  Report Type: Spontaneous
  Country: US (occurrence: US)
  Receive Date: 20250909
  Receipt Date: 20250909
  Transmission Date: 20251020
  Serious: No
  Sender: DOMPE FARMACEUTICI
  Company Number: US-FARMAPROD-202408-3014

PATIENT
  Sex: Female

DRUGS (15)
  1. OXERVATE [Suspect]
     Active Substance: CENEGERMIN-BKBJ
     Indication: Neurotrophic keratopathy
     Route: 047
     Dates: start: 20240715
  2. OMEPRAZOLE [Concomitant]
     Active Substance: OMEPRAZOLE
  3. TRULICITY [Concomitant]
     Active Substance: DULAGLUTIDE
  4. MYRBETRIQ [Concomitant]
     Active Substance: MIRABEGRON
  5. LISINOPRIL [Concomitant]
     Active Substance: LISINOPRIL
  6. SERTRALINE HYDROCHLORIDE [Concomitant]
     Active Substance: SERTRALINE HYDROCHLORIDE
  7. VITAMIN D-400 [Concomitant]
  8. HYDRALAZINE HCL [Concomitant]
     Active Substance: HYDRALAZINE HYDROCHLORIDE
  9. FUROSEMIDE [Concomitant]
     Active Substance: FUROSEMIDE
  10. FLONASE ALLERGY RELIEF [Concomitant]
     Active Substance: FLUTICASONE PROPIONATE
  11. CLONIDINE HYDROCHLORIDE [Concomitant]
     Active Substance: CLONIDINE HYDROCHLORIDE
  12. ATORVASTATIN CALCIUM [Concomitant]
     Active Substance: ATORVASTATIN CALCIUM
  13. ASPIRIN [Concomitant]
     Active Substance: ASPIRIN
  14. AMLODIPINE BESYLATE [Concomitant]
     Active Substance: AMLODIPINE BESYLATE
  15. ALLEGRA ALLERGY [Concomitant]
     Active Substance: FEXOFENADINE HYDROCHLORIDE

REACTIONS (1)
  - Eye pain [Unknown]
